FAERS Safety Report 25297281 (Version 4)
Quarter: 2025Q3

REPORT INFORMATION
  Report Type: Spontaneous
  Country: US (occurrence: US)
  Receive Date: 20250511
  Receipt Date: 20250806
  Transmission Date: 20251020
  Serious: No
  Sender: SANOFI AVENTIS
  Company Number: US-SA-2025SA133497

PATIENT
  Age: 9 Year
  Sex: Male

DRUGS (5)
  1. DUPIXENT [Suspect]
     Active Substance: DUPILUMAB
     Indication: Dermatitis atopic
     Dosage: 200 MG, QOW
     Route: 058
     Dates: start: 202408, end: 202501
  2. DUPIXENT [Suspect]
     Active Substance: DUPILUMAB
     Indication: Dermatitis atopic
     Route: 058
     Dates: start: 20250403, end: 20250403
  3. DUPIXENT [Suspect]
     Active Substance: DUPILUMAB
     Dosage: 300 MG, Q4W
     Route: 058
     Dates: start: 2025
  4. TACROLIMUS [Concomitant]
     Active Substance: TACROLIMUS
  5. VEVYE [Concomitant]
     Active Substance: CYCLOSPORINE

REACTIONS (8)
  - Eye colour change [Not Recovered/Not Resolved]
  - Eye disorder [Not Recovered/Not Resolved]
  - Superficial injury of eye [Not Recovered/Not Resolved]
  - Multiple allergies [Unknown]
  - Sleep disorder due to a general medical condition [Unknown]
  - Eye pruritus [Not Recovered/Not Resolved]
  - Eczema [Unknown]
  - Pruritus [Unknown]

NARRATIVE: CASE EVENT DATE: 20250101
